FAERS Safety Report 18193381 (Version 1)
Quarter: 2020Q3

REPORT INFORMATION
  Report Type: Spontaneous
  Country: KR (occurrence: KR)
  Receive Date: 20200825
  Receipt Date: 20200825
  Transmission Date: 20201103
  Serious: Yes (Other)
  Sender: FDA-Public Use
  Company Number: KR-PFM-2020-17323

PATIENT

DRUGS (3)
  1. METHIMAZOLE. [Suspect]
     Active Substance: METHIMAZOLE
     Indication: TREMOR
     Dosage: 20 MG, DAILY
  2. PROPRANOLOL HYDROCHLORIDE. [Suspect]
     Active Substance: PROPRANOLOL HYDROCHLORIDE
     Indication: TREMOR
     Dosage: 80 MG, DAILY
     Route: 065
  3. PROPRANOLOL HYDROCHLORIDE. [Suspect]
     Active Substance: PROPRANOLOL HYDROCHLORIDE
     Indication: OFF LABEL USE

REACTIONS (4)
  - Hypothyroidism [Unknown]
  - Product use in unapproved indication [Unknown]
  - Product use issue [Unknown]
  - Off label use [Unknown]
